FAERS Safety Report 5097122-1 (Version None)
Quarter: 2006Q3

REPORT INFORMATION
  Report Type: 
  Country: None (occurrence: None)
  Receive Date: 20060906
  Receipt Date: 20060822
  Transmission Date: 20061208
  Serious: Yes (Hospitalization)
  Sender: FDA-Public Use
  Company Number: US-AMGEN-US190809

PATIENT
  Sex: Female

DRUGS (12)
  1. EPOGEN [Suspect]
     Indication: DIALYSIS
     Route: 065
  2. BACTRIM [Concomitant]
  3. COUMADIN [Concomitant]
  4. PREDNISONE TAB [Concomitant]
  5. DIATX [Concomitant]
  6. FLUCONAZOLE [Concomitant]
  7. MICRO-K [Concomitant]
  8. PRAVACHOL [Concomitant]
  9. PROTONIX [Concomitant]
  10. SURFAK [Concomitant]
  11. MICARDIS [Concomitant]
  12. RENAGEL [Concomitant]

REACTIONS (1)
  - ANAEMIA [None]
